FAERS Safety Report 12802175 (Version 1)
Quarter: 2016Q4

REPORT INFORMATION
  Report Type: Spontaneous
  Country: US (occurrence: US)
  Receive Date: 20161003
  Receipt Date: 20161003
  Transmission Date: 20170207
  Serious: No
  Sender: FDA-Public Use
  Company Number: US-JAZZ-2016-US-012200

PATIENT
  Sex: Female

DRUGS (20)
  1. EFFEXOR [Concomitant]
     Active Substance: VENLAFAXINE HYDROCHLORIDE
  2. LEVAQUIN [Concomitant]
     Active Substance: LEVOFLOXACIN
  3. BELSOMRA [Concomitant]
     Active Substance: SUVOREXANT
  4. PROPRANOLOL [Concomitant]
     Active Substance: PROPRANOLOL\PROPRANOLOL HYDROCHLORIDE
  5. ROBAXIN [Concomitant]
     Active Substance: METHOCARBAMOL
  6. XYREM [Suspect]
     Active Substance: SODIUM OXYBATE
     Indication: NARCOLEPSY
     Dosage: 3 G, BID
     Route: 048
     Dates: start: 201309, end: 201311
  7. FIORICET [Concomitant]
     Active Substance: ACETAMINOPHEN\BUTALBITAL\CAFFEINE
  8. CLONAZEPAM. [Concomitant]
     Active Substance: CLONAZEPAM
  9. ESTRACE [Concomitant]
     Active Substance: ESTRADIOL
  10. ROBITUSSIN COUGH + CHEST CONGESTION [Concomitant]
  11. XYREM [Suspect]
     Active Substance: SODIUM OXYBATE
     Indication: CATAPLEXY
     Dosage: 4.5 G, BID
     Route: 048
     Dates: start: 201311
  12. POTASSIUM CHLORIDE. [Concomitant]
     Active Substance: POTASSIUM CHLORIDE
  13. OXYCODONE [Concomitant]
     Active Substance: OXYCODONE
  14. CLONIDINE HCL [Concomitant]
     Active Substance: CLONIDINE HYDROCHLORIDE
  15. METHADONE HCL [Concomitant]
     Active Substance: METHADONE HYDROCHLORIDE
  16. TOPAMAX [Concomitant]
     Active Substance: TOPIRAMATE
  17. ZIOPTAN [Concomitant]
     Active Substance: TAFLUPROST
  18. HYDROCORTISONE. [Concomitant]
     Active Substance: HYDROCORTISONE
  19. ENJUVIA [Concomitant]
     Active Substance: ESTROGENS, CONJUGATED SYNTHETIC B
  20. ASPIRIN. [Concomitant]
     Active Substance: ASPIRIN

REACTIONS (1)
  - Neuropathy peripheral [Not Recovered/Not Resolved]
